FAERS Safety Report 4264369-3 (Version None)
Quarter: 2004Q1

REPORT INFORMATION
  Report Type: 
  Country: None (occurrence: None)
  Receive Date: 20040106
  Receipt Date: 20040106
  Transmission Date: 20041129
  Serious: Yes (Life-Threatening)
  Sender: FDA-Public Use
  Company Number: None

PATIENT
  Sex: Male
  Weight: 90.7194 kg

DRUGS (2)
  1. SUDAFED 30MG [Suspect]
     Indication: RESPIRATORY DISORDER
     Dosage: 2 QID
     Dates: start: 20040103, end: 20040103
  2. SUDAFED 30MG [Suspect]
     Indication: SINUSITIS
     Dosage: 2 QID
     Dates: start: 20040103, end: 20040103

REACTIONS (2)
  - BLOOD PRESSURE INCREASED [None]
  - HEART RATE INCREASED [None]
